FAERS Safety Report 9646149 (Version 4)
Quarter: 2017Q3

REPORT INFORMATION
  Report Type: Spontaneous
  Country: TN (occurrence: TN)
  Receive Date: 20131025
  Receipt Date: 20170822
  Transmission Date: 20171128
  Serious: Yes (Death, Life-Threatening, Hospitalization)
  Sender: FDA-Public Use
  Company Number: PHHY2013TN116635

PATIENT
  Age: 32 Year
  Sex: Female

DRUGS (2)
  1. METHOTREXATE. [Suspect]
     Active Substance: METHOTREXATE
     Indication: ECTOPIC PREGNANCY TERMINATION
     Dosage: 75 MG, UNK
     Route: 065
  2. METHOTREXATE. [Suspect]
     Active Substance: METHOTREXATE
     Dosage: 44 MG/M2, ONE DOSE
     Route: 030
     Dates: start: 20130303

REACTIONS (17)
  - Toxicity to various agents [Fatal]
  - Pancytopenia [Unknown]
  - Odynophagia [Unknown]
  - Macule [Unknown]
  - Mucosal inflammation [Unknown]
  - Diarrhoea haemorrhagic [Unknown]
  - Skin lesion [Unknown]
  - Pyrexia [Unknown]
  - Renal failure [Unknown]
  - Bone marrow failure [Unknown]
  - Erythema [Unknown]
  - Skin hyperpigmentation [Unknown]
  - Septic shock [Fatal]
  - Hepatocellular injury [Unknown]
  - Dysphagia [Unknown]
  - Cholestasis [Unknown]
  - Maternal exposure during pregnancy [Unknown]
